FAERS Safety Report 21507835 (Version 3)
Quarter: 2022Q4

REPORT INFORMATION
  Report Type: Spontaneous
  Country: US (occurrence: US)
  Receive Date: 20221026
  Receipt Date: 20221207
  Transmission Date: 20230112
  Serious: Yes (Hospitalization, Other)
  Sender: FDA-Public Use
  Company Number: US-PFIZER INC-PV202200088218

PATIENT
  Age: 51 Year
  Sex: Female

DRUGS (1)
  1. IBRANCE [Suspect]
     Active Substance: PALBOCICLIB
     Dosage: 75 MG

REACTIONS (8)
  - Pain [Unknown]
  - Tongue paralysis [Unknown]
  - Second primary malignancy [Unknown]
  - Bone cancer [Unknown]
  - Headache [Unknown]
  - Full blood count abnormal [Unknown]
  - Anxiety [Unknown]
  - White blood cell count decreased [Unknown]
